FAERS Safety Report 5969505-6 (Version None)
Quarter: 2008Q4

REPORT INFORMATION
  Report Type: 
  Country: None (occurrence: None)
  Receive Date: 20081126
  Receipt Date: 20080912
  Transmission Date: 20090506
  Serious: No
  Sender: FDA-Public Use
  Company Number: US-ABBOTT-08P-163-0475937-00

PATIENT
  Sex: Female

DRUGS (4)
  1. SIMCOR [Suspect]
     Indication: HYPERCHOLESTEROLAEMIA
     Dosage: DAILY AT BEDTIME
     Route: 048
     Dates: start: 20080721
  2. PRITOR [Concomitant]
     Indication: DRUG USE FOR UNKNOWN INDICATION
     Dosage: 80/20MG DAILY
     Route: 048
  3. AMLODIPINE [Concomitant]
     Indication: DRUG USE FOR UNKNOWN INDICATION
     Route: 048
  4. ACETYLSALICYLIC ACID SRT [Concomitant]
     Indication: DRUG USE FOR UNKNOWN INDICATION
     Dosage: DAILY AT BEDTIME

REACTIONS (4)
  - DIARRHOEA [None]
  - FEELING ABNORMAL [None]
  - HEADACHE [None]
  - MUSCULOSKELETAL STIFFNESS [None]
